FAERS Safety Report 6969478-3 (Version None)
Quarter: 2010Q3

REPORT INFORMATION
  Report Type: 
  Country: None (occurrence: None)
  Receive Date: 20100902
  Receipt Date: 20100819
  Transmission Date: 20110219
  Serious: Yes (Other)
  Sender: FDA-Public Use
  Company Number: DSA_43822_2010

PATIENT
  Sex: Female

DRUGS (2)
  1. WELLBUTRIN XL [Suspect]
     Indication: DEPRESSION
     Dosage: 150 MG PLUS MG ORAL
     Route: 048
  2. WELLBUTRIN XL [Suspect]

REACTIONS (4)
  - DEAFNESS [None]
  - NEUROTOXICITY [None]
  - PRODUCT SUBSTITUTION ISSUE [None]
  - TINNITUS [None]
